FAERS Safety Report 4398792-3 (Version None)
Quarter: 2004Q3

REPORT INFORMATION
  Report Type: 
  Country: None (occurrence: None)
  Receive Date: 20040712
  Receipt Date: 20040621
  Transmission Date: 20050211
  Serious: Yes (Hospitalization)
  Sender: FDA-Public Use
  Company Number: USA040670736

PATIENT
  Age: 11 Year
  Sex: Female

DRUGS (2)
  1. PROZAC [Suspect]
     Dates: start: 20040401
  2. SEROQUEL [Concomitant]

REACTIONS (2)
  - FEMUR FRACTURE [None]
  - IMPAIRED HEALING [None]
